FAERS Safety Report 14393039 (Version 1)
Quarter: 2018Q1

REPORT INFORMATION
  Report Type: Other
  Country: US (occurrence: US)
  Receive Date: 20180116
  Receipt Date: 20180116
  Transmission Date: 20180509
  Serious: Yes (Hospitalization)
  Sender: FDA-Public Use
  Company Number: US-MERZ NORTH AMERICA, INC.-18MRZ-00031

PATIENT
  Age: 8 Year
  Sex: Female
  Weight: 25 kg

DRUGS (1)
  1. XEOMIN [Suspect]
     Active Substance: INCOBOTULINUMTOXINA
     Indication: SALIVARY HYPERSECRETION
     Dosage: 25 UNITS

REACTIONS (3)
  - Gastrooesophageal reflux disease [Recovering/Resolving]
  - Dysphagia [Recovering/Resolving]
  - Off label use [Recovering/Resolving]
